FAERS Safety Report 16698269 (Version 1)
Quarter: 2019Q3

REPORT INFORMATION
  Report Type: Spontaneous
  Country: FR (occurrence: FR)
  Receive Date: 20190813
  Receipt Date: 20190813
  Transmission Date: 20191004
  Serious: Yes (Hospitalization)
  Sender: FDA-Public Use
  Company Number: FR-AMGEN-FRASP2019125995

PATIENT
  Age: 8 Year
  Sex: Male

DRUGS (2)
  1. CALCIUM [Concomitant]
     Active Substance: CALCIUM
     Dosage: UNK
  2. XGEVA [Suspect]
     Active Substance: DENOSUMAB
     Indication: ANEURYSMAL BONE CYST
     Dosage: UNK
     Route: 065

REACTIONS (4)
  - Hypocalcaemia [Unknown]
  - Hypercalcaemia [Unknown]
  - Off label use [Unknown]
  - Nervous system disorder [Not Recovered/Not Resolved]
